FAERS Safety Report 16208362 (Version 1)
Quarter: 2019Q2

REPORT INFORMATION
  Report Type: Spontaneous
  Country: FR (occurrence: FR)
  Receive Date: 20190417
  Receipt Date: 20190417
  Transmission Date: 20190711
  Serious: Yes (Life-Threatening, Hospitalization)
  Sender: FDA-Public Use
  Company Number: FR-PFIZER INC-2019157478

PATIENT
  Age: 68 Year
  Sex: Female

DRUGS (3)
  1. METHYLPREDNISOLONE SODIUM SUCCINATE. [Suspect]
     Active Substance: METHYLPREDNISOLONE SODIUM SUCCINATE
     Indication: MYASTHENIA GRAVIS CRISIS
     Dosage: UNK
     Dates: start: 20111206
  2. PRIVIGEN [Suspect]
     Active Substance: HUMAN IMMUNOGLOBULIN G
     Indication: MYASTHENIA GRAVIS CRISIS
     Dosage: 30 G, 1X/DAY
     Route: 042
     Dates: start: 20111206, end: 20111209
  3. COTAREG [Concomitant]
     Active Substance: HYDROCHLOROTHIAZIDE\VALSARTAN
     Indication: HYPERTENSION
     Dosage: UNK
     Route: 048

REACTIONS (7)
  - Cardiopulmonary failure [Recovered/Resolved]
  - Acute myocardial infarction [Recovered/Resolved]
  - Acute coronary syndrome [Recovered/Resolved]
  - Blood pressure abnormal [Recovered/Resolved]
  - Chest pain [Recovered/Resolved]
  - General physical health deterioration [Recovered/Resolved]
  - Anxiety [Recovered/Resolved]

NARRATIVE: CASE EVENT DATE: 20111208
